FAERS Safety Report 10108794 (Version 2)
Quarter: 2014Q2

REPORT INFORMATION
  Report Type: Report from Study
  Country: CO (occurrence: CO)
  Receive Date: 20140425
  Receipt Date: 20140619
  Transmission Date: 20141212
  Serious: Yes (Other)
  Sender: FDA-Public Use
  Company Number: CO-ROCHE-1390134

PATIENT
  Age: 45 Year
  Sex: Female

DRUGS (7)
  1. XOLAIR [Suspect]
     Indication: ASTHMA
     Route: 058
     Dates: start: 201312, end: 201402
  2. VERAPAMIL [Concomitant]
  3. LOSARTAN [Concomitant]
  4. HYDROCHLOROTHIAZIDE [Concomitant]
  5. THIAMINE [Concomitant]
  6. THEOPHYLLINE [Concomitant]
  7. FLUOXETINE [Concomitant]

REACTIONS (1)
  - Tuberculosis [Recovering/Resolving]
